FAERS Safety Report 5915856-0 (Version None)
Quarter: 2008Q4

REPORT INFORMATION
  Report Type: 
  Country: None (occurrence: None)
  Receive Date: 20081010
  Receipt Date: 20081001
  Transmission Date: 20090506
  Serious: Yes (Other)
  Sender: FDA-Public Use
  Company Number: US-PFIZER INC-2008083105

PATIENT
  Age: 68 Year
  Sex: Female
  Weight: 59.09 kg

DRUGS (5)
  1. LIPITOR [Suspect]
     Indication: BLOOD CHOLESTEROL INCREASED
  2. ZETIA [Suspect]
     Indication: BLOOD CHOLESTEROL
     Dates: end: 20080101
  3. CLOZAPINE [Concomitant]
  4. NABUMETONE [Concomitant]
  5. ADVAIR DISKUS 100/50 [Concomitant]

REACTIONS (5)
  - BLOOD CHOLESTEROL INCREASED [None]
  - JOINT STIFFNESS [None]
  - MOBILITY DECREASED [None]
  - PAIN [None]
  - SURGERY [None]
